FAERS Safety Report 5486441-2 (Version None)
Quarter: 2007Q4

REPORT INFORMATION
  Report Type: 
  Country: None (occurrence: None)
  Receive Date: 20071016
  Receipt Date: 20071012
  Transmission Date: 20080405
  Serious: Yes (Life-Threatening, Hospitalization)
  Sender: FDA-Public Use
  Company Number: A0674781A

PATIENT
  Age: 62 Year
  Weight: 96 kg

DRUGS (5)
  1. AVANDIA [Suspect]
     Dosage: 2MG PER DAY
     Route: 048
  2. METFORMIN HCL [Concomitant]
     Dosage: 2G PER DAY
  3. LIPIDIL [Concomitant]
     Dosage: 160MG PER DAY
  4. ALTACE [Concomitant]
     Dosage: 10MG PER DAY
  5. METOPROLOL [Concomitant]
     Dosage: 2MG PER DAY

REACTIONS (1)
  - MYOCARDIAL INFARCTION [None]
